FAERS Safety Report 10088268 (Version 1)
Quarter: 2014Q2

REPORT INFORMATION
  Report Type: Spontaneous
  Country: GB (occurrence: GB)
  Receive Date: 20140421
  Receipt Date: 20140421
  Transmission Date: 20141212
  Serious: Yes (Life-Threatening, Hospitalization)
  Sender: FDA-Public Use
  Company Number: GB-ACCORD-023158

PATIENT
  Age: 68 Year
  Sex: Female
  Weight: 90 kg

DRUGS (8)
  1. LISINOPRIL [Suspect]
     Indication: HYPERTENSION
     Route: 048
  2. CLENIL MODULITE [Concomitant]
  3. FELODIPINE [Concomitant]
  4. SALBUTAMOL [Concomitant]
  5. SIMVASTATIN [Concomitant]
  6. QUININE [Concomitant]
  7. PIOGLITAZONE/PIOGLITAZONE HYDROCHLORIDE [Concomitant]
  8. METFORMIN [Concomitant]

REACTIONS (2)
  - Product substitution issue [Unknown]
  - Angioedema [Recovered/Resolved]
